FAERS Safety Report 22637982 (Version 1)
Quarter: 2023Q2

REPORT INFORMATION
  Report Type: Spontaneous
  Country: US (occurrence: US)
  Receive Date: 20230626
  Receipt Date: 20230626
  Transmission Date: 20230721
  Serious: Yes (Death, Other)
  Sender: FDA-Public Use
  Company Number: US-drreddys-LIT/USA/23/0167937

PATIENT
  Age: 56 Year
  Sex: Male

DRUGS (4)
  1. DOCETAXEL [Suspect]
     Active Substance: DOCETAXEL
     Indication: Adenocarcinoma
  2. PEMETREXED DISODIUM [Suspect]
     Active Substance: PEMETREXED DISODIUM
     Indication: Adenocarcinoma
  3. NIVOLUMAB [Suspect]
     Active Substance: NIVOLUMAB
     Indication: Adenocarcinoma
  4. IPILIMUMAB [Suspect]
     Active Substance: IPILIMUMAB
     Indication: Adenocarcinoma

REACTIONS (3)
  - Adenocarcinoma [Fatal]
  - Nephropathy toxic [Unknown]
  - Drug ineffective [Unknown]
